FAERS Safety Report 9015176 (Version 2)
Quarter: 2013Q1

REPORT INFORMATION
  Report Type: Spontaneous
  Country: US (occurrence: None)
  Receive Date: 20130103
  Receipt Date: 20130122
  Transmission Date: 20140127
  Serious: Yes (Disabling, Other)
  Sender: FDA-Public Use
  Company Number: NSR_00762_2012

PATIENT
  Sex: Female
  Weight: 56.7 kg

DRUGS (5)
  1. BACLOFEN [Suspect]
     Indication: MUSCLE SPASTICITY
     Dosage: 5X/DAY
     Route: 048
     Dates: start: 2012
  2. TRAMADOL [Concomitant]
  3. DETROL [Concomitant]
  4. COPAXONE [Concomitant]
  5. AMPYRA [Concomitant]

REACTIONS (8)
  - Abasia [None]
  - Mobility decreased [None]
  - Muscle spasticity [None]
  - Drug ineffective [None]
  - Product quality issue [None]
  - Product substitution issue [None]
  - Fall [None]
  - Rotator cuff syndrome [None]
